FAERS Safety Report 8588174-2 (Version None)
Quarter: 2012Q3

REPORT INFORMATION
  Report Type: 
  Country: None (occurrence: None)
  Receive Date: 20120731
  Receipt Date: 20120720
  Transmission Date: 20120928
  Serious: Yes (Hospitalization)
  Sender: FDA-Public Use
  Company Number: JPI-P-022944

PATIENT
  Age: 47 Year
  Sex: Female
  Weight: 72.5755 kg

DRUGS (7)
  1. CYCLOSPORINE [Concomitant]
  2. DULOXETINE HYDROCHLORIDE [Concomitant]
  3. XYREM [Suspect]
     Indication: NARCOLEPSY
     Dosage: , ORAL, 9 GM (4.5 GM,2 IN 1 D),ORAL
     Route: 048
     Dates: start: 20120707
  4. XYREM [Suspect]
     Indication: NARCOLEPSY
     Dosage: , ORAL, 9 GM (4.5 GM,2 IN 1 D),ORAL
     Route: 048
     Dates: start: 20101101
  5. XYREM [Suspect]
     Indication: NARCOLEPSY
     Dosage: , ORAL, 9 GM (4.5 GM,2 IN 1 D),ORAL
     Route: 048
     Dates: end: 20120703
  6. METHYLPHENIDATE [Concomitant]
  7. LEVETIRACETAM [Concomitant]

REACTIONS (4)
  - DYSPHONIA [None]
  - PROCEDURAL PAIN [None]
  - OVARIAN NEOPLASM [None]
  - PAIN IN EXTREMITY [None]
